FAERS Safety Report 4453833-X (Version None)
Quarter: 2004Q3

REPORT INFORMATION
  Report Type: 
  Country: None (occurrence: None)
  Receive Date: 20040920
  Receipt Date: 20040909
  Transmission Date: 20050211
  Serious: Yes (Other)
  Sender: FDA-Public Use
  Company Number: GR-ROCHE-380052

PATIENT
  Sex: Female
  Weight: 66 kg

DRUGS (3)
  1. PEG-INTERFERON ALFA 2A (RO 25-8310) [Suspect]
     Route: 058
     Dates: start: 20040324, end: 20040829
  2. RIBAVIRIN [Suspect]
     Route: 048
     Dates: start: 20040324, end: 20040829
  3. NEUROBION [Concomitant]
     Dates: start: 20040715

REACTIONS (4)
  - FEBRILE INFECTION [None]
  - NEUTROPENIA [None]
  - PANCYTOPENIA [None]
  - THYROIDITIS [None]
